FAERS Safety Report 5475646-2 (Version None)
Quarter: 2007Q4

REPORT INFORMATION
  Report Type: 
  Country: None (occurrence: None)
  Receive Date: 20071003
  Receipt Date: 20070924
  Transmission Date: 20080405
  Serious: Yes (Hospitalization)
  Sender: FDA-Public Use
  Company Number: NO-AVENTIS-200517394GDDC

PATIENT
  Age: 51 Year
  Sex: Female

DRUGS (9)
  1. ARAVA [Suspect]
     Indication: RHEUMATOID ARTHRITIS
     Route: 048
     Dates: start: 20020227, end: 20020101
  2. ARAVA [Suspect]
     Route: 048
     Dates: start: 20020101, end: 20050622
  3. VENTOLINE                          /00139501/ [Concomitant]
     Dosage: DOSE: UNK
  4. CLARITIN [Concomitant]
  5. IBUMETIN [Concomitant]
  6. KLACID                             /00984601/ [Concomitant]
     Dates: start: 20050617, end: 20050623
  7. SALAZOPYRIN [Concomitant]
     Dosage: DOSE: UNK
     Dates: start: 19980101, end: 20010101
  8. AERIUS                             /01398501/ [Concomitant]
     Dosage: DOSE: UNK
  9. PREDNISOLONE [Concomitant]
     Dosage: DOSE: UNK

REACTIONS (7)
  - ANOREXIA [None]
  - DYSGEUSIA [None]
  - PERIORBITAL OEDEMA [None]
  - PHOTOSENSITIVITY REACTION [None]
  - RASH ERYTHEMATOUS [None]
  - SWELLING [None]
  - WEIGHT DECREASED [None]
